FAERS Safety Report 6970865-8 (Version None)
Quarter: 2010Q3

REPORT INFORMATION
  Report Type: 
  Country: None (occurrence: None)
  Receive Date: 20100908
  Receipt Date: 20100827
  Transmission Date: 20110219
  Serious: Yes (Life-Threatening)
  Sender: FDA-Public Use
  Company Number: B0671137A

PATIENT

DRUGS (7)
  1. HEPTODIN [Suspect]
     Dosage: .1G PER DAY
     Route: 048
     Dates: start: 20100701
  2. SEBIVO [Suspect]
     Indication: PRODUCT USED FOR UNKNOWN INDICATION
     Dosage: 600MG PER DAY
     Route: 065
     Dates: start: 20100201
  3. POTASSIUM ASPARTATE [Suspect]
     Indication: PRODUCT USED FOR UNKNOWN INDICATION
     Route: 065
  4. MAGNESIUM ASPARTATE [Suspect]
     Indication: PRODUCT USED FOR UNKNOWN INDICATION
     Route: 065
  5. INSULIN [Suspect]
     Indication: PRODUCT USED FOR UNKNOWN INDICATION
     Route: 065
  6. DIAMMONIUM GLYCYRRHIZINATE [Suspect]
     Indication: PRODUCT USED FOR UNKNOWN INDICATION
     Route: 065
  7. POLYPEPTIDE [Suspect]
     Indication: PRODUCT USED FOR UNKNOWN INDICATION
     Route: 065

REACTIONS (3)
  - BLOOD CREATINE PHOSPHOKINASE INCREASED [None]
  - LACTIC ACIDOSIS [None]
  - MALAISE [None]
